FAERS Safety Report 4502801-8 (Version None)
Quarter: 2004Q4

REPORT INFORMATION
  Report Type: 
  Country: None (occurrence: None)
  Receive Date: 20041117
  Receipt Date: 20041108
  Transmission Date: 20050328
  Serious: Yes (Other)
  Sender: FDA-Public Use
  Company Number: US-JNJFOC-20041102265

PATIENT
  Sex: Female

DRUGS (2)
  1. REMICADE [Suspect]
     Indication: CROHN'S DISEASE
     Route: 042
  2. AZATHIOPRINE [Concomitant]

REACTIONS (4)
  - ABASIA [None]
  - ARTHRALGIA [None]
  - PAIN IN EXTREMITY [None]
  - PELVIC PAIN [None]
